FAERS Safety Report 20671347 (Version 1)
Quarter: 2022Q2

REPORT INFORMATION
  Report Type: Spontaneous
  Country: US (occurrence: US)
  Receive Date: 20220404
  Receipt Date: 20220404
  Transmission Date: 20220720
  Serious: No
  Sender: FDA-Public Use
  Company Number: US-SA-2022SA112501

PATIENT
  Sex: Female

DRUGS (4)
  1. ELOCTATE [Suspect]
     Active Substance: (1-743)-(1638-2332)-BLOOD-COAGULATION FACTOR VIII (SYNTHETIC HUMAN) FUSION PROTEIN WITH IMMUNOGLOBUL
     Indication: Factor VIII deficiency
     Dosage: 2159 IU, PRN (INFUSE 4000 UNITS (3600 - 4400) SLOW IV PUSH 3 TIMES WEEKLY AND EVERY 24 HOURS AS NEED
     Route: 042
     Dates: start: 202107
  2. ELOCTATE [Suspect]
     Active Substance: (1-743)-(1638-2332)-BLOOD-COAGULATION FACTOR VIII (SYNTHETIC HUMAN) FUSION PROTEIN WITH IMMUNOGLOBUL
     Indication: Factor VIII deficiency
     Dosage: 2159 IU, PRN (INFUSE 4000 UNITS (3600 - 4400) SLOW IV PUSH 3 TIMES WEEKLY AND EVERY 24 HOURS AS NEED
     Route: 042
     Dates: start: 202107
  3. ELOCTATE [Suspect]
     Active Substance: (1-743)-(1638-2332)-BLOOD-COAGULATION FACTOR VIII (SYNTHETIC HUMAN) FUSION PROTEIN WITH IMMUNOGLOBUL
     Dosage: 1588 IU, PRN (INFUSE 4000 UNITS (3600 - 4400) SLOW IV PUSH 3 TIMES WEEKLY AND EVERY 24 HOURS AS NEED
     Route: 042
  4. ELOCTATE [Suspect]
     Active Substance: (1-743)-(1638-2332)-BLOOD-COAGULATION FACTOR VIII (SYNTHETIC HUMAN) FUSION PROTEIN WITH IMMUNOGLOBUL
     Dosage: 1588 IU, PRN (INFUSE 4000 UNITS (3600 - 4400) SLOW IV PUSH 3 TIMES WEEKLY AND EVERY 24 HOURS AS NEED
     Route: 042

REACTIONS (1)
  - Product dose omission issue [Unknown]
